FAERS Safety Report 10078465 (Version 2)
Quarter: 2014Q2

REPORT INFORMATION
  Report Type: Spontaneous
  Country: PT (occurrence: PT)
  Receive Date: 20140415
  Receipt Date: 20140502
  Transmission Date: 20141212
  Serious: No
  Sender: FDA-Public Use
  Company Number: PT-JNJFOC-20140404548

PATIENT
  Age: 46 Year
  Sex: Female

DRUGS (14)
  1. XEPLION [Suspect]
     Indication: PRODUCT USED FOR UNKNOWN INDICATION
     Route: 030
  2. INVEGA [Suspect]
     Indication: PRODUCT USED FOR UNKNOWN INDICATION
     Route: 048
  3. RITONAVIR [Concomitant]
     Route: 065
  4. ABACAVIR [Concomitant]
     Route: 065
  5. LAMIVUDINE [Concomitant]
     Route: 065
  6. ATAZANAVIR [Concomitant]
     Route: 065
  7. LEVOTHYROXINE [Concomitant]
     Route: 065
  8. AMLODIPINE [Concomitant]
     Route: 065
  9. PROPRANOLOL [Concomitant]
     Route: 065
  10. RISPERIDONE [Concomitant]
     Route: 065
  11. DIPIPERONE [Concomitant]
     Route: 065
  12. TRAZODONE [Concomitant]
     Route: 065
  13. DIAZEPAM [Concomitant]
     Dosage: 15-20 MG
     Route: 065
  14. FLUPHENAZINE DECANOATE [Concomitant]
     Route: 065

REACTIONS (1)
  - Hypersensitivity [Unknown]
